FAERS Safety Report 26208345 (Version 1)
Quarter: 2025Q4

REPORT INFORMATION
  Report Type: Spontaneous
  Country: US (occurrence: None)
  Receive Date: 20251226
  Receipt Date: 20251226
  Transmission Date: 20260118
  Serious: Yes (Other)
  Sender: FDA-CTU
  Company Number: None

PATIENT
  Age: 44 Year
  Sex: Female
  Weight: 48.6 kg

DRUGS (1)
  1. COSMETICS [Suspect]
     Active Substance: COSMETICS
     Dates: start: 20251225, end: 20251225

REACTIONS (2)
  - Lip swelling [None]
  - Lip erythema [None]

NARRATIVE: CASE EVENT DATE: 20251225
